FAERS Safety Report 17355690 (Version 1)
Quarter: 2020Q1

REPORT INFORMATION
  Report Type: Spontaneous
  Country: DE (occurrence: DE)
  Receive Date: 20200131
  Receipt Date: 20200131
  Transmission Date: 20200409
  Serious: Yes (Other)
  Sender: FDA-Public Use
  Company Number: DE-ABBVIE-20K-062-3257730-00

PATIENT
  Age: 6 Month
  Sex: Female

DRUGS (1)
  1. TESTOSTERONE. [Suspect]
     Active Substance: TESTOSTERONE
     Indication: PRODUCT USED FOR UNKNOWN INDICATION
     Dosage: FATHER REPORTED DAILY TOPICAL USE OF
     Route: 062

REACTIONS (4)
  - Exposure via skin contact [Recovering/Resolving]
  - Pseudoprecocious puberty [Recovering/Resolving]
  - Precocious puberty [Recovering/Resolving]
  - Skin hyperpigmentation [Recovering/Resolving]
